FAERS Safety Report 4845849-6 (Version None)
Quarter: 2005Q4

REPORT INFORMATION
  Report Type: 
  Country: None (occurrence: None)
  Receive Date: 20051206
  Receipt Date: 20051129
  Transmission Date: 20060501
  Serious: Yes (Hospitalization)
  Sender: FDA-Public Use
  Company Number: 425363

PATIENT
  Age: 55 Year
  Sex: Female

DRUGS (11)
  1. CARVEDILOL [Suspect]
     Indication: CARDIAC FAILURE CHRONIC
     Dosage: 1.25MG TWICE PER DAY
     Route: 048
     Dates: start: 20040707, end: 20040708
  2. DIGOXIN [Suspect]
     Indication: DRUG USE FOR UNKNOWN INDICATION
     Route: 048
     Dates: start: 19991115
  3. LOSARTAN POTASSIUM [Concomitant]
  4. ALDACTONE [Concomitant]
  5. ASPIRIN [Concomitant]
  6. LIPITOR [Concomitant]
  7. DEPAS [Concomitant]
  8. NITOROL [Concomitant]
  9. MELBIN [Concomitant]
  10. OPALMON [Concomitant]
  11. GLUCOBAY [Concomitant]

REACTIONS (3)
  - CARDIAC ARREST [None]
  - DIZZINESS [None]
  - SINUS ARREST [None]
